FAERS Safety Report 25572226 (Version 4)
Quarter: 2025Q4

REPORT INFORMATION
  Report Type: Report from Study
  Country: US (occurrence: US)
  Receive Date: 20250717
  Receipt Date: 20251201
  Transmission Date: 20260117
  Serious: Yes (Hospitalization, Other)
  Sender: NOVARTIS
  Company Number: US-002147023-NVSC2025US113212

PATIENT
  Age: 0 Year
  Sex: Male
  Weight: 3.75 kg

DRUGS (2)
  1. ZOLGENSMA [Suspect]
     Active Substance: ONASEMNOGENE ABEPARVOVEC-XIOI
     Indication: Spinal muscular atrophy
     Dosage: UNK, ONCE/SINGLE
     Route: 042
     Dates: start: 20250709, end: 20250709
  2. PREDNISOLONE [Concomitant]
     Active Substance: PREDNISOLONE
     Indication: Product used for unknown indication
     Dosage: 1 MG/KG, QD (LIQUID)
     Route: 048
     Dates: start: 20250708, end: 20250712

REACTIONS (5)
  - Liver disorder [Recovering/Resolving]
  - Pyrexia [Recovered/Resolved]
  - Hypophagia [Unknown]
  - Hypertransaminasaemia [Recovered/Resolved]
  - Troponin I increased [Not Recovered/Not Resolved]

NARRATIVE: CASE EVENT DATE: 20250712
